FAERS Safety Report 5407287-7 (Version None)
Quarter: 2007Q3

REPORT INFORMATION
  Report Type: 
  Country: None (occurrence: None)
  Receive Date: 20070807
  Receipt Date: 20070730
  Transmission Date: 20080115
  Serious: Yes (Hospitalization, Other)
  Sender: FDA-Public Use
  Company Number: US-ELI_LILLY_AND_COMPANY-US200707007068

PATIENT

DRUGS (4)
  1. ZYPREXA [Suspect]
     Dosage: 7.5 MG, DAILY (1/D)
     Route: 064
     Dates: start: 20070101
  2. ZYPREXA [Suspect]
     Dosage: 10 MG, DAILY (1/D)
     Route: 064
  3. ZYPREXA [Suspect]
     Dosage: 15 MG, DAILY (1/D)
     Route: 064
  4. PAXIL [Concomitant]
     Route: 064

REACTIONS (1)
  - DYSTONIA [None]
